FAERS Safety Report 5772500-3 (Version None)
Quarter: 2008Q2

REPORT INFORMATION
  Report Type: 
  Country: None (occurrence: None)
  Receive Date: 20080613
  Receipt Date: 20080610
  Transmission Date: 20081010
  Serious: Yes (Death, Hospitalization, Other)
  Sender: FDA-Public Use
  Company Number: NO-ABBOTT-08P-122-0456771-00

PATIENT
  Sex: Female

DRUGS (8)
  1. HUMIRA [Suspect]
     Indication: CROHN'S DISEASE
     Route: 058
     Dates: start: 20080401, end: 20080520
  2. METHYLPREDNISOLONE [Suspect]
     Indication: CROHN'S DISEASE
     Route: 042
     Dates: start: 20080513, end: 20080520
  3. METRONIDAZOLE HCL [Concomitant]
     Indication: PYREXIA
     Dates: start: 20080520, end: 20080520
  4. METRONIDAZOLE HCL [Concomitant]
     Indication: GENERAL PHYSICAL HEALTH DETERIORATION
  5. PENICILLIN G [Concomitant]
     Indication: PYREXIA
     Dates: start: 20080520, end: 20080520
  6. PENICILLIN G [Concomitant]
     Indication: GENERAL PHYSICAL HEALTH DETERIORATION
  7. GAROMYCIN [Concomitant]
     Indication: PYREXIA
     Dates: start: 20080520, end: 20080520
  8. GAROMYCIN [Concomitant]
     Indication: GENERAL PHYSICAL HEALTH DETERIORATION

REACTIONS (8)
  - ACUTE RESPIRATORY DISTRESS SYNDROME [None]
  - DIARRHOEA [None]
  - ESCHERICHIA SEPSIS [None]
  - GENERAL PHYSICAL HEALTH DETERIORATION [None]
  - HAEMOGLOBIN DECREASED [None]
  - NEUTROPENIA [None]
  - SEPTIC SHOCK [None]
  - THROMBOCYTOPENIA [None]
